FAERS Safety Report 10101695 (Version 1)
Quarter: 2014Q2

REPORT INFORMATION
  Report Type: Spontaneous
  Country: US (occurrence: None)
  Receive Date: 20140423
  Receipt Date: 20140423
  Transmission Date: 20141212
  Serious: No
  Sender: FDA-Public Use
  Company Number: None

PATIENT
  Age: 50 Year
  Sex: Female

DRUGS (13)
  1. AFINITOR [Suspect]
     Indication: BREAST CANCER FEMALE
     Route: 048
     Dates: start: 20140131, end: 20140414
  2. AFINITOR [Suspect]
     Indication: METASTASES TO BONE
     Route: 048
     Dates: start: 20140131, end: 20140414
  3. EXEMESTANE [Concomitant]
  4. PROTONIX [Concomitant]
  5. SYNTHROID [Concomitant]
  6. PERCOCET [Concomitant]
  7. ZANTAC [Concomitant]
  8. IMITREX [Concomitant]
  9. COMPAZINE [Concomitant]
  10. VITAMIND3 [Concomitant]
  11. CALCIUM [Concomitant]
  12. MAGNESIUM [Concomitant]
  13. POTASSIUM [Concomitant]

REACTIONS (3)
  - Diarrhoea [None]
  - Haematochezia [None]
  - Blood potassium decreased [None]
